FAERS Safety Report 5387667-9 (Version None)
Quarter: 2007Q3

REPORT INFORMATION
  Report Type: 
  Country: None (occurrence: None)
  Receive Date: 20070712
  Receipt Date: 20070712
  Transmission Date: 20080115
  Serious: Yes (Hospitalization)
  Sender: FDA-Public Use
  Company Number: None

PATIENT
  Age: 92 Year
  Sex: Male

DRUGS (7)
  1. TAMSULOSIN  0.4MG [Suspect]
     Indication: BENIGN PROSTATIC HYPERPLASIA
     Dosage: 0.4 MG AT BEDTIME PO
     Route: 048
  2. NEXIUM [Concomitant]
  3. COUMADIN [Concomitant]
  4. PRAVACHOL [Concomitant]
  5. VICODIN [Concomitant]
  6. FLOMAX [Concomitant]
  7. ZOLOFT [Concomitant]

REACTIONS (4)
  - ASTHENIA [None]
  - HEAD INJURY [None]
  - PRESYNCOPE [None]
  - SYNCOPE [None]
